FAERS Safety Report 25272176 (Version 2)
Quarter: 2025Q3

REPORT INFORMATION
  Report Type: Report from Study
  Country: GB (occurrence: GB)
  Receive Date: 20250506
  Receipt Date: 20250809
  Transmission Date: 20251021
  Serious: Yes (Other)
  Sender: ALEXION PHARMACEUTICALS
  Company Number: GB-AstraZeneca-CH-00859786A

PATIENT
  Sex: Female

DRUGS (2)
  1. BENRALIZUMAB [Suspect]
     Active Substance: BENRALIZUMAB
     Indication: Asthma
     Dosage: 30 MILLIGRAM, Q8W
     Dates: start: 202406
  2. PREDNISOLONE [Concomitant]
     Active Substance: PREDNISOLONE
     Route: 065

REACTIONS (3)
  - Lower respiratory tract infection [Unknown]
  - Post procedural persistent drain fluid [Unknown]
  - Postoperative wound complication [Unknown]
